FAERS Safety Report 9198350 (Version 1)
Quarter: 2013Q1

REPORT INFORMATION
  Report Type: Spontaneous
  Country: US (occurrence: None)
  Receive Date: 20120709
  Receipt Date: 20120709
  Transmission Date: 20140127
  Serious: Yes (Other)
  Sender: FDA-Public Use
  Company Number: PHEH2012US006899

PATIENT
  Age: 53 Year
  Sex: Male

DRUGS (1)
  1. GLEEVEC (IMATINIB) UNKNOWN [Suspect]
     Indication: MALIGNANT ANORECTAL NEOPLASM
     Route: 048
     Dates: start: 20120327

REACTIONS (3)
  - Neoplasm progression [None]
  - Neoplasm malignant [None]
  - Pain [None]
